FAERS Safety Report 16914384 (Version 1)
Quarter: 2019Q4

REPORT INFORMATION
  Report Type: Spontaneous
  Country: US (occurrence: US)
  Receive Date: 20190822
  Receipt Date: 20190822
  Transmission Date: 20200122
  Serious: Yes (Life-Threatening, Hospitalization)
  Sender: FDA-Public Use
  Company Number: None

PATIENT

DRUGS (1)
  1. ESTRADIOL. [Suspect]
     Active Substance: ESTRADIOL
     Route: 048

REACTIONS (5)
  - Heart rate increased [None]
  - Thrombosis [None]
  - Device malfunction [None]
  - Impaired work ability [None]
  - Economic problem [None]
